FAERS Safety Report 4786999-2 (Version None)
Quarter: 2005Q4

REPORT INFORMATION
  Report Type: 
  Country: None (occurrence: None)
  Receive Date: 20051004
  Receipt Date: 20050928
  Transmission Date: 20060501
  Serious: Yes (Hospitalization)
  Sender: FDA-Public Use
  Company Number: JP-JPN-A20052302

PATIENT
  Age: 29 Year
  Sex: Male

DRUGS (9)
  1. LAMIVUDINE [Suspect]
     Indication: ACQUIRED IMMUNODEFICIENCY SYNDROME
     Dosage: 150MG TWICE PER DAY
     Route: 048
     Dates: start: 20030625
  2. RETROVIR [Suspect]
     Indication: ACQUIRED IMMUNODEFICIENCY SYNDROME
     Dosage: 400MG PER DAY
     Route: 048
     Dates: start: 20030625, end: 20030630
  3. ZERIT [Suspect]
     Indication: ACQUIRED IMMUNODEFICIENCY SYNDROME
     Dosage: 60MG PER DAY
     Route: 048
     Dates: start: 20030701
  4. STOCRIN [Suspect]
     Indication: ACQUIRED IMMUNODEFICIENCY SYNDROME
     Dosage: 600MG PER DAY
     Route: 048
     Dates: start: 20030625
  5. DENOSINE (GANCICLOVIR SODIUM) [Suspect]
     Indication: CYTOMEGALOVIRUS CHORIORETINITIS
     Dosage: 5MGK PER DAY
     Route: 042
     Dates: start: 20030620, end: 20030815
  6. ZITHROMAC [Suspect]
     Indication: DRUG USE FOR UNKNOWN INDICATION
     Dosage: 500MG PER DAY
     Route: 048
     Dates: start: 20030630
  7. ESANBUTOL [Suspect]
     Indication: DRUG USE FOR UNKNOWN INDICATION
     Dosage: 750MG PER DAY
     Route: 048
     Dates: start: 20030630
  8. RIFABUTIN [Suspect]
     Indication: DRUG USE FOR UNKNOWN INDICATION
     Dosage: 150MG TWICE PER DAY
     Route: 048
     Dates: start: 20030702
  9. COTRIM [Suspect]
     Indication: DRUG USE FOR UNKNOWN INDICATION
     Dosage: 2U PER DAY
     Route: 048
     Dates: start: 20030620

REACTIONS (4)
  - CEREBRAL TOXOPLASMOSIS [None]
  - CONVULSION [None]
  - DEPRESSED LEVEL OF CONSCIOUSNESS [None]
  - HEADACHE [None]
